FAERS Safety Report 5033208-5 (Version None)
Quarter: 2006Q2

REPORT INFORMATION
  Report Type: 
  Country: None (occurrence: None)
  Receive Date: 20060620
  Receipt Date: 20060609
  Transmission Date: 20061013
  Serious: Yes (Death)
  Sender: FDA-Public Use
  Company Number: 2006-DE-03008GD

PATIENT

DRUGS (1)
  1. DICLOFENAC (DICLOFENAC) [Suspect]
     Indication: MUSCULOSKELETAL DISORDER

REACTIONS (1)
  - MYOCARDIAL INFARCTION [None]
